FAERS Safety Report 6340548-6 (Version None)
Quarter: 2009Q3

REPORT INFORMATION
  Report Type: 
  Country: None (occurrence: None)
  Receive Date: 20090904
  Receipt Date: 20090831
  Transmission Date: 20100115
  Serious: Yes (Other)
  Sender: FDA-Public Use
  Company Number: US-JNJFOC-20090606859

PATIENT
  Sex: Female

DRUGS (6)
  1. TOPAMAX [Suspect]
     Indication: MIGRAINE PROPHYLAXIS
     Route: 048
  2. METOPROLOL [Concomitant]
     Indication: HYPERTENSION
     Route: 048
  3. PAXIL [Concomitant]
     Indication: ANXIETY
     Route: 048
  4. CLONAZEPAM [Concomitant]
     Indication: ANXIETY
     Route: 048
  5. AMITRIPTYLINE [Concomitant]
     Indication: SLEEP DISORDER THERAPY
     Route: 048
  6. XANAX [Concomitant]
     Indication: PANIC ATTACK
     Dosage: AS NEEDED

REACTIONS (11)
  - ANGLE CLOSURE GLAUCOMA [None]
  - CHOROIDAL EFFUSION [None]
  - EYE INJURY [None]
  - EYE SWELLING [None]
  - IRITIS [None]
  - OEDEMA PERIPHERAL [None]
  - PHOTOSENSITIVITY REACTION [None]
  - PUPILLARY DISORDER [None]
  - URINARY HESITATION [None]
  - VISUAL IMPAIRMENT [None]
  - WEIGHT INCREASED [None]
